FAERS Safety Report 22397656 (Version 1)
Quarter: 2023Q2

REPORT INFORMATION
  Report Type: Spontaneous
  Country: US (occurrence: US)
  Receive Date: 20230602
  Receipt Date: 20230602
  Transmission Date: 20230721
  Serious: No
  Sender: FDA-Public Use
  Company Number: US-BRISTOL-MYERS SQUIBB COMPANY-2023-076577

PATIENT
  Age: 44 Year
  Sex: Female
  Weight: 63.049 kg

DRUGS (2)
  1. ZEPOSIA [Suspect]
     Active Substance: OZANIMOD HYDROCHLORIDE
     Indication: Relapsing multiple sclerosis
     Dosage: DOSE : 1 CAPSULE;     FREQ : 0.23 FOR 7 DAYS, THEN 0.92
     Route: 048
     Dates: start: 20230516
  2. ZEPOSIA [Suspect]
     Active Substance: OZANIMOD HYDROCHLORIDE
     Dosage: DOSE : 1 CAPSULE;     FREQ : 0.23 FOR 7 DAYS, THEN 0.92
     Route: 048

REACTIONS (1)
  - Intervertebral disc disorder [Unknown]

NARRATIVE: CASE EVENT DATE: 20230501
